FAERS Safety Report 6381700-3 (Version None)
Quarter: 2009Q3

REPORT INFORMATION
  Report Type: 
  Country: None (occurrence: None)
  Receive Date: 20090930
  Receipt Date: 20090917
  Transmission Date: 20100115
  Serious: Yes (Hospitalization)
  Sender: FDA-Public Use
  Company Number: PHHY2009GB40373

PATIENT
  Sex: Male

DRUGS (4)
  1. CLOZARIL [Suspect]
     Indication: SCHIZOPHRENIA
     Dosage: UNK
     Dates: start: 20020108, end: 20090910
  2. AMITRIPTYLINE [Suspect]
  3. ZOPICLONE [Suspect]
  4. METHADONE HYDROCHLORIDE [Suspect]

REACTIONS (2)
  - OVERDOSE [None]
  - SOMNOLENCE [None]
